FAERS Safety Report 8523041 (Version 4)
Quarter: 2012Q4

REPORT INFORMATION
  Report Type: 
  Country: DE (occurrence: DE)
  Receive Date: 20120420
  Receipt Date: 20121112
  Transmission Date: 20130627
  Serious: Yes (Other)
  Sender: FDA-Public Use
  Company Number: DE-PFIZER INC-2012095930

PATIENT
  Age: 38 Year
  Sex: Female
  Weight: 105 kg

DRUGS (6)
  1. ZELDOX [Suspect]
     Indication: SCHIZOPHRENIA
     Dosage: 60 mg, 2x/day
     Dates: start: 1992
  2. ZELDOX [Suspect]
     Dosage: 60
     Dates: start: 2002
  3. ZELDOX [Suspect]
     Dosage: 80-60-60 mg
  4. ZELDOX [Suspect]
     Dosage: 60-40-60 mg
  5. SEROQUEL [Suspect]
     Indication: SLEEP DISTURBANCE
     Dosage: 175 mg, UNK
  6. SEROQUEL [Suspect]
     Indication: SCHIZOPHRENIA

REACTIONS (9)
  - Depressed level of consciousness [Unknown]
  - Withdrawal syndrome [Unknown]
  - Dependence [Unknown]
  - Logorrhoea [Unknown]
  - Peripheral vascular disorder [Unknown]
  - Cardiovascular disorder [Unknown]
  - Hiccups [Unknown]
  - Apathy [Unknown]
  - Diarrhoea [Unknown]
